FAERS Safety Report 9942572 (Version 1)
Quarter: 2014Q1

REPORT INFORMATION
  Report Type: Report from Study
  Country: US (occurrence: US)
  Receive Date: 20140303
  Receipt Date: 20140303
  Transmission Date: 20141002
  Serious: No
  Sender: FDA-Public Use
  Company Number: US-ABBVIE-13P-163-1044329-00

PATIENT
  Sex: Male
  Weight: 158.9 kg

DRUGS (20)
  1. HUMIRA [Suspect]
     Indication: RHEUMATOID ARTHRITIS
     Dates: start: 200706, end: 200812
  2. ANDROGEL [Concomitant]
     Indication: BLOOD TESTOSTERONE DECREASED
  3. CALCIUM [Concomitant]
     Indication: SUPPLEMENTATION THERAPY
  4. CIMZIA [Concomitant]
     Indication: RHEUMATOID ARTHRITIS
     Dates: start: 201301
  5. COQ10 [Concomitant]
     Indication: SUPPLEMENTATION THERAPY
  6. FISH OIL [Concomitant]
     Indication: SUPPLEMENTATION THERAPY
  7. FOLIC ACID [Concomitant]
     Indication: SUPPLEMENTATION THERAPY
  8. POTASSIUM [Concomitant]
     Indication: SUPPLEMENTATION THERAPY
  9. LASIX [Concomitant]
     Indication: FLUID RETENTION
  10. METHOTREXATE [Concomitant]
     Indication: RHEUMATOID ARTHRITIS
  11. MILK THISTLE [Concomitant]
     Indication: SUPPLEMENTATION THERAPY
  12. OXYCODONE [Concomitant]
     Indication: PAIN
  13. OXYCONTIN [Concomitant]
     Indication: PAIN
  14. PREDNISONE [Concomitant]
     Indication: RHEUMATOID ARTHRITIS
  15. SOMA [Concomitant]
     Indication: PAIN
  16. STOOL SOFTENER [Concomitant]
     Indication: CONSTIPATION
  17. TOPROL XL [Concomitant]
     Indication: HYPERTENSION
  18. TYLENOL [Concomitant]
     Indication: PAIN
  19. VEGETABLE LAXATIVE POWDER [Concomitant]
     Indication: CONSTIPATION
  20. VITAMIN B12 [Concomitant]
     Indication: VITAMIN B12 DEFICIENCY

REACTIONS (1)
  - Drug ineffective [Recovered/Resolved]
